FAERS Safety Report 13930632 (Version 2)
Quarter: 2017Q3

REPORT INFORMATION
  Report Type: Spontaneous
  Country: CH (occurrence: CH)
  Receive Date: 20170901
  Receipt Date: 20170918
  Transmission Date: 20171127
  Serious: Yes (Other)
  Sender: FDA-Public Use
  Company Number: CH-MYLANLABS-2017M1054181

PATIENT
  Age: 56 Year
  Sex: Female
  Weight: 79 kg

DRUGS (2)
  1. PARACETAMOL [Suspect]
     Active Substance: ACETAMINOPHEN
     Indication: ARTHRALGIA
     Dosage: (1 G 1-1-1)
     Route: 048
  2. IBUPROFEN. [Suspect]
     Active Substance: IBUPROFEN
     Indication: ARTHRALGIA
     Dosage: (400 MG 1-0-1)
     Route: 048

REACTIONS (5)
  - Steatohepatitis [Unknown]
  - Abdominal fat apron [Unknown]
  - Haemochromatosis [Unknown]
  - Hyperbilirubinaemia [Unknown]
  - Scleral discolouration [Unknown]
